FAERS Safety Report 6969614-9 (Version None)
Quarter: 2010Q3

REPORT INFORMATION
  Report Type: 
  Country: None (occurrence: None)
  Receive Date: 20100907
  Receipt Date: 20100824
  Transmission Date: 20110219
  Serious: Yes (Other)
  Sender: FDA-Public Use
  Company Number: PHHY2010CA55607

PATIENT
  Sex: Female

DRUGS (4)
  1. DIOVAN [Suspect]
     Indication: HYPERTENSION
     Dosage: 160 MG TWICE DAILY
  2. DIOVAN [Suspect]
     Dosage: 320 MG ONCE DAILY
  3. METOPROLOL TARTRATE [Concomitant]
     Dosage: 100 MG TWICE DAILY
  4. METOPROLOL TARTRATE [Concomitant]
     Dosage: 75 MG TWICE DAILY

REACTIONS (3)
  - DIZZINESS [None]
  - HEART RATE DECREASED [None]
  - HYPOTENSION [None]
